FAERS Safety Report 12970032 (Version 3)
Quarter: 2016Q4

REPORT INFORMATION
  Report Type: Spontaneous
  Country: IN (occurrence: IN)
  Receive Date: 20161123
  Receipt Date: 20161123
  Transmission Date: 20170207
  Serious: Yes (Other)
  Sender: FDA-Public Use
  Company Number: IN-JAZZ-2016-IN-022388

PATIENT

DRUGS (1)
  1. ERWINASE [Suspect]
     Active Substance: ASPARAGINASE ERWINIA CHRYSANTHEMI
     Indication: ACUTE LYMPHOCYTIC LEUKAEMIA

REACTIONS (1)
  - Diabetic ketoacidosis [Unknown]
